FAERS Safety Report 8276709-9 (Version None)
Quarter: 2012Q2

REPORT INFORMATION
  Report Type: 
  Country: None (occurrence: None)
  Receive Date: 20120412
  Receipt Date: 20120412
  Transmission Date: 20120825
  Serious: Yes (Life-Threatening, Hospitalization)
  Sender: FDA-Public Use
  Company Number: None

PATIENT
  Sex: Female
  Weight: 68.038 kg

DRUGS (3)
  1. CLONIDINE [Concomitant]
  2. CYMBALTA [Suspect]
     Indication: DYSTHYMIC DISORDER
     Dosage: 30 MG
     Dates: start: 20100831, end: 20120317
  3. CYMBALTA [Suspect]
     Indication: DEPRESSION
     Dosage: 30 MG
     Dates: start: 20100831, end: 20120317

REACTIONS (5)
  - INTENTIONAL SELF-INJURY [None]
  - SUICIDE ATTEMPT [None]
  - PHYSICAL ASSAULT [None]
  - BIPOLAR DISORDER [None]
  - HAEMORRHAGE [None]
